FAERS Safety Report 24529040 (Version 2)
Quarter: 2025Q2

REPORT INFORMATION
  Report Type: Spontaneous
  Country: AU (occurrence: AU)
  Receive Date: 20241021
  Receipt Date: 20250417
  Transmission Date: 20250716
  Serious: Yes (Hospitalization, Other)
  Sender: CHEPLAPHARM
  Company Number: AU-CHEPLA-2024013187

PATIENT
  Sex: Female

DRUGS (7)
  1. OLANZAPINE PAMOATE [Suspect]
     Active Substance: OLANZAPINE PAMOATE
  2. OLANZAPINE PAMOATE [Suspect]
     Active Substance: OLANZAPINE PAMOATE
     Route: 030
  3. OLANZAPINE PAMOATE [Suspect]
     Active Substance: OLANZAPINE PAMOATE
  4. OLANZAPINE PAMOATE [Suspect]
     Active Substance: OLANZAPINE PAMOATE
  5. OLANZAPINE PAMOATE [Suspect]
     Active Substance: OLANZAPINE PAMOATE
  6. SEROQUEL [Concomitant]
     Active Substance: QUETIAPINE FUMARATE
  7. PALIPERIDONE [Concomitant]
     Active Substance: PALIPERIDONE

REACTIONS (12)
  - Weight increased [Unknown]
  - Swelling face [Unknown]
  - Vomiting [Unknown]
  - Peripheral swelling [Unknown]
  - Inflammation [Unknown]
  - Fall [Unknown]
  - Choking [Unknown]
  - Tremor [Unknown]
  - Muscle spasticity [Unknown]
  - Contusion [Unknown]
  - Dyskinesia [Unknown]
  - Off label use [Unknown]
